FAERS Safety Report 5734887-7 (Version None)
Quarter: 2008Q2

REPORT INFORMATION
  Report Type: 
  Country: None (occurrence: None)
  Receive Date: 20080512
  Receipt Date: 20080507
  Transmission Date: 20081010
  Serious: Yes (Other)
  Sender: FDA-Public Use
  Company Number: B0515378A

PATIENT
  Age: 35 Year
  Sex: Male

DRUGS (1)
  1. AUGMENTIN '125' [Suspect]
     Indication: RESPIRATORY TRACT INFECTION
     Dosage: 1TAB TWICE PER DAY
     Route: 065
     Dates: start: 20080322, end: 20080325

REACTIONS (3)
  - AGGRESSION [None]
  - AGITATION [None]
  - WITHDRAWAL SYNDROME [None]
